FAERS Safety Report 11445997 (Version 2)
Quarter: 2015Q4

REPORT INFORMATION
  Report Type: Report from Study
  Country: JP (occurrence: JP)
  Receive Date: 20150902
  Receipt Date: 20151112
  Transmission Date: 20160304
  Serious: Yes (Death, Hospitalization, Other)
  Sender: FDA-Public Use
  Company Number: JP-OTSUKA-2015_008260

PATIENT

DRUGS (20)
  1. PREDNISOLONE. [Concomitant]
     Active Substance: PREDNISOLONE
     Dosage: 30 MG/DAY
     Route: 048
     Dates: start: 20150224, end: 20150227
  2. POLAPREZINC [Concomitant]
     Active Substance: POLAPREZINC
     Indication: ZINC DEFICIENCY
     Dosage: 150 MG/DAY
     Route: 048
     Dates: end: 20150429
  3. AMINOLEBAN EN POWDER [Concomitant]
     Active Substance: AMINO ACIDS
     Indication: PRODUCT USED FOR UNKNOWN INDICATION
     Dosage: 50 G/DAY
     Route: 048
     Dates: end: 20150412
  4. PREDNISOLONE. [Concomitant]
     Active Substance: PREDNISOLONE
     Dosage: 10 MG/DAY
     Route: 048
     Dates: start: 20150317, end: 20150329
  5. PREDNISOLONE. [Concomitant]
     Active Substance: PREDNISOLONE
     Dosage: 7 MG/DAY
     Route: 048
     Dates: start: 20150416, end: 20150422
  6. SPIRONOLACTONE. [Concomitant]
     Active Substance: SPIRONOLACTONE
     Indication: FLUID RETENTION
     Dosage: 25 MG/DAY
     Route: 048
     Dates: end: 20150429
  7. BONALON [Concomitant]
     Active Substance: ALENDRONATE SODIUM
     Indication: PROPHYLAXIS
     Dosage: 35 MG, QW
     Route: 048
     Dates: start: 20150228, end: 20150429
  8. PREDNISOLONE. [Concomitant]
     Active Substance: PREDNISOLONE
     Dosage: 20 MG/DAY
     Route: 048
     Dates: start: 20150307, end: 20150313
  9. PREDNISOLONE. [Concomitant]
     Active Substance: PREDNISOLONE
     Dosage: 15 MG/DAY
     Route: 048
     Dates: start: 20150314, end: 20150316
  10. PREDNISOLONE. [Concomitant]
     Active Substance: PREDNISOLONE
     Dosage: 8 MG/DAY
     Route: 048
     Dates: start: 20150330, end: 20150415
  11. TOLVAPTAN [Suspect]
     Active Substance: TOLVAPTAN
     Indication: OEDEMA DUE TO HEPATIC DISEASE
     Dosage: 3.75 MG, QD
     Route: 048
     Dates: start: 20150213, end: 20150429
  12. URSODEOXYCHOLIC ACID [Concomitant]
     Active Substance: URSODIOL
     Indication: PRODUCT USED FOR UNKNOWN INDICATION
     Dosage: 900 MG/DAY
     Route: 048
     Dates: end: 20150429
  13. FUROSEMIDE. [Concomitant]
     Active Substance: FUROSEMIDE
     Indication: FLUID RETENTION
     Dosage: 20 MG/DAY
     Route: 048
     Dates: end: 20150429
  14. LYRICA [Concomitant]
     Active Substance: PREGABALIN
     Indication: PRODUCT USED FOR UNKNOWN INDICATION
     Dosage: 75 MG/DAY
     Route: 048
     Dates: end: 20150412
  15. ISOLEUCINE W/LEUCINE/VALINE [Concomitant]
     Active Substance: ISOLEUCINE\LEUCINE\VALINE
     Indication: PRODUCT USED FOR UNKNOWN INDICATION
     Dosage: 12.45 G/DAY
     Route: 048
     Dates: end: 20150429
  16. POLAPREZINC [Concomitant]
     Active Substance: POLAPREZINC
     Indication: PRODUCT USED FOR UNKNOWN INDICATION
  17. PREDNISOLONE. [Concomitant]
     Active Substance: PREDNISOLONE
     Dosage: 6 MG/DAY
     Route: 048
     Dates: start: 20150423, end: 20150429
  18. PARIET [Concomitant]
     Active Substance: RABEPRAZOLE SODIUM
     Indication: PROPHYLAXIS
     Dosage: 10 MG/DAY
     Route: 048
     Dates: start: 20150221, end: 20150429
  19. PREDNISOLONE. [Concomitant]
     Active Substance: PREDNISOLONE
     Indication: PRODUCT USED FOR UNKNOWN INDICATION
     Dosage: 40 MG/DAY
     Route: 048
     Dates: start: 20150221, end: 20150223
  20. PREDNISOLONE. [Concomitant]
     Active Substance: PREDNISOLONE
     Dosage: 25 MG/DAY
     Route: 048
     Dates: start: 20150228, end: 20150306

REACTIONS (3)
  - Fracture [Not Recovered/Not Resolved]
  - Fall [Not Recovered/Not Resolved]
  - Cerebral infarction [Fatal]

NARRATIVE: CASE EVENT DATE: 20150407
